FAERS Safety Report 9050478 (Version 1)
Quarter: 2013Q1

REPORT INFORMATION
  Report Type: Spontaneous
  Country: BR (occurrence: BR)
  Receive Date: 20130205
  Receipt Date: 20130205
  Transmission Date: 20140127
  Serious: Yes (Other)
  Sender: FDA-Public Use
  Company Number: PHHY2013BR008444

PATIENT
  Sex: Female
  Weight: 75 kg

DRUGS (5)
  1. SANDOSTATIN LAR [Suspect]
     Indication: ACROMEGALY
     Dosage: 20 MG, ONE TIME
     Route: 030
     Dates: start: 200907
  2. GLIMEPIRIDE [Concomitant]
     Indication: DIABETES MELLITUS
     Dosage: 2 MG, QD
  3. METFORMIN [Concomitant]
     Indication: DIABETES MELLITUS
     Dosage: 850 MG, BID
  4. MICARDIS ANLO [Concomitant]
     Indication: HYPERTENSION
     Dosage: 80 MG TELMISARTAN\ 5 MG AMLODEPIN QD
  5. ATENOLOL [Concomitant]
     Indication: HYPERTENSION
     Dosage: 1 TABLET OF 25 MG+1 TABLET OF 50 MG QD
     Route: 048

REACTIONS (4)
  - Neoplasm [Unknown]
  - Incorrect drug dosage form administered [Unknown]
  - Product deposit [Unknown]
  - Needle issue [Unknown]
